FAERS Safety Report 19426855 (Version 1)
Quarter: 2021Q2

REPORT INFORMATION
  Report Type: Spontaneous
  Country: CN (occurrence: CN)
  Receive Date: 20210616
  Receipt Date: 20210616
  Transmission Date: 20210717
  Serious: Yes (Other)
  Sender: FDA-Public Use
  Company Number: CN-PFIZER INC-2021651135

PATIENT
  Age: 9 Year
  Sex: Male

DRUGS (1)
  1. SOLU?MEDROL [Suspect]
     Active Substance: METHYLPREDNISOLONE SODIUM SUCCINATE
     Indication: UPPER RESPIRATORY TRACT INFECTION
     Dosage: 40 MG, 1X/DAY
     Route: 041
     Dates: start: 20210526, end: 20210526

REACTIONS (2)
  - Pruritus [Recovering/Resolving]
  - Lip pruritus [Recovering/Resolving]

NARRATIVE: CASE EVENT DATE: 20210526
